FAERS Safety Report 9351431 (Version 4)
Quarter: 2014Q1

REPORT INFORMATION
  Report Type: Report from Study
  Country: DE (occurrence: DE)
  Receive Date: 20130617
  Receipt Date: 20140224
  Transmission Date: 20141002
  Serious: Yes (Hospitalization)
  Sender: FDA-Public Use
  Company Number: DE-ROCHE-1235308

PATIENT
  Age: 56 Year
  Sex: Female
  Weight: 78 kg

DRUGS (14)
  1. RITUXIMAB [Suspect]
     Indication: NON-HODGKIN^S LYMPHOMA UNSPECIFIED HISTOLOGY INDOLENT
     Dosage: MOST RECENT DOSE PRIOR TO EVENT: 04/JUN/2013 (VOLUME: 340 ML, DOSE CONCENTRATION: 1 MG/ML)
     Route: 042
     Dates: start: 20130409
  2. BENDAMUSTINE [Suspect]
     Indication: NON-HODGKIN^S LYMPHOMA UNSPECIFIED HISTOLOGY INDOLENT
     Dosage: MOST RECENT DOSE PRIOR TO EVENT: 04/JUN/2013 (163 MG)
     Route: 042
     Dates: start: 20130410
  3. ZOFRAN [Concomitant]
     Indication: VOMITING
     Route: 065
     Dates: start: 20130604, end: 20130604
  4. SOLU-DECORTIN [Concomitant]
     Indication: THROMBOCYTOPENIA
     Route: 065
     Dates: start: 20130409
  5. ALLOPURINOL [Concomitant]
     Indication: TUMOUR LYSIS SYNDROME
     Route: 065
     Dates: start: 20130409
  6. TAVEGIL [Concomitant]
     Indication: INFUSION RELATED REACTION
     Route: 065
     Dates: start: 20130409
  7. PARACETAMOL [Concomitant]
     Indication: INFUSION RELATED REACTION
     Route: 065
     Dates: start: 20130409
  8. CETIRIZIN [Concomitant]
     Indication: HYPERSENSITIVITY
     Route: 065
     Dates: start: 20130416
  9. CIPROFLOXACIN [Concomitant]
     Indication: PYREXIA
     Route: 065
     Dates: start: 20130509, end: 20130516
  10. RED BLOOD CELLS [Concomitant]
     Indication: ANAEMIA
     Dosage: 2 PACKS
     Route: 065
     Dates: start: 20130507, end: 20130507
  11. RED BLOOD CELLS [Concomitant]
     Route: 065
     Dates: start: 20130603, end: 20130603
  12. NOVALGIN (GERMANY) [Concomitant]
     Indication: PYREXIA
     Route: 065
     Dates: start: 20130604, end: 20130605
  13. PANTOZOL (GERMANY) [Concomitant]
     Indication: GASTRITIS
     Route: 065
     Dates: start: 20130606, end: 20130607
  14. CLEXANE [Concomitant]
     Indication: THROMBOSIS
     Route: 065
     Dates: start: 20130606, end: 20130607

REACTIONS (1)
  - Blood creatinine increased [Recovered/Resolved]
